FAERS Safety Report 5764857-4 (Version None)
Quarter: 2008Q2

REPORT INFORMATION
  Report Type: 
  Country: None (occurrence: None)
  Receive Date: 20080611
  Receipt Date: 20080529
  Transmission Date: 20081010
  Serious: Yes (Hospitalization, Other)
  Sender: FDA-Public Use
  Company Number: CA-ELI_LILLY_AND_COMPANY-CA200805006188

PATIENT
  Age: 86 Year
  Sex: Female

DRUGS (6)
  1. FORTEO [Suspect]
     Indication: OSTEOPOROSIS
     Dosage: 20 UG, DAILY (1/D)
     Route: 058
     Dates: start: 20080303, end: 20080515
  2. FORTEO [Suspect]
     Dosage: 20 UG, DAILY (1/D)
     Route: 058
     Dates: start: 20080522
  3. PROPRANOLOL [Concomitant]
     Dosage: 20 MG, 2/D
  4. IBUROFEN [Concomitant]
     Dosage: 200 MG, EACH EVENING
  5. CALCIUM                                 /N/A/ [Concomitant]
  6. VITAMIN D [Concomitant]

REACTIONS (8)
  - ABDOMINAL DISCOMFORT [None]
  - ARTHRALGIA [None]
  - CONVULSION [None]
  - EROSIVE OESOPHAGITIS [None]
  - FALL [None]
  - GASTRIC ULCER [None]
  - JOINT INJURY [None]
  - LOSS OF CONSCIOUSNESS [None]
